FAERS Safety Report 5625191-6 (Version None)
Quarter: 2008Q1

REPORT INFORMATION
  Report Type: 
  Country: None (occurrence: None)
  Receive Date: 20080207
  Receipt Date: 20080128
  Transmission Date: 20080703
  Serious: Yes (Other)
  Sender: FDA-Public Use
  Company Number: 2008002434

PATIENT
  Age: 68 Year
  Sex: 0
  Weight: 45.4 kg

DRUGS (1)
  1. BENADRYL [Suspect]
     Indication: FOOD ALLERGY
     Dosage: 2 TABLETS ONCE, ORAL
     Route: 048
     Dates: start: 20071217, end: 20071217

REACTIONS (2)
  - HYPERTENSION [None]
  - PALPITATIONS [None]
